FAERS Safety Report 5872141-3 (Version None)
Quarter: 2008Q3

REPORT INFORMATION
  Report Type: 
  Country: None (occurrence: None)
  Receive Date: 20080905
  Receipt Date: 20080829
  Transmission Date: 20090109
  Serious: Yes (Disabling)
  Sender: FDA-Public Use
  Company Number: GB-TEVA-176755ISR

PATIENT
  Age: 67 Year
  Sex: Female
  Weight: 83 kg

DRUGS (1)
  1. RAMIPRIL [Suspect]
     Indication: RENAL FAILURE CHRONIC
     Dates: start: 20080425, end: 20080810

REACTIONS (1)
  - RAYNAUD'S PHENOMENON [None]
